FAERS Safety Report 8503320-4 (Version None)
Quarter: 2012Q3

REPORT INFORMATION
  Report Type: 
  Country: None (occurrence: None)
  Receive Date: 20120702
  Receipt Date: 20120105
  Transmission Date: 20120928
  Serious: Yes (Hospitalization)
  Sender: FDA-Public Use
  Company Number: IN-024384

PATIENT
  Age: 58 Year
  Sex: Male

DRUGS (5)
  1. CHLORAMBUCIL (CHLORAMBUCIL) [Suspect]
     Indication: CHRONIC LYMPHOCYTIC LEUKAEMIA
     Dosage: 10 MGM2 DAYS 1-7 EVERY 28 DAYS ORAL
     Route: 048
     Dates: start: 20110324
  2. AZEE [Concomitant]
  3. CEFTAZIDIME [Concomitant]
  4. OFATUMUMAB (OFATUMUMAB) (INJECTION) [Suspect]
     Indication: CHRONIC LYMPHOCYTIC LEUKAEMIA
     Dosage: 300 MG DAY 1, 1000 MG DAY 8 FOLLOWED BY 1000 MG EVERY 28 DAYS INTRAVENOUS (NOT OTHERWISE SPECIFIED)
     Route: 042
     Dates: start: 20110324
  5. CLOTRIMAZOLE [Concomitant]

REACTIONS (4)
  - PLATELET COUNT DECREASED [None]
  - PRODUCTIVE COUGH [None]
  - FEBRILE NEUTROPENIA [None]
  - WHITE BLOOD CELL COUNT DECREASED [None]
